FAERS Safety Report 8928058 (Version 1)
Quarter: 2012Q4

REPORT INFORMATION
  Report Type: 
  Country: NL (occurrence: NL)
  Receive Date: 20121128
  Receipt Date: 20121128
  Transmission Date: 20130627
  Serious: Yes (Death)
  Sender: FDA-Public Use
  Company Number: PHHY2012NL108285

PATIENT
  Age: 82 Year
  Sex: Male

DRUGS (2)
  1. ZOMETA [Suspect]
     Indication: PROSTATE CANCER METASTATIC
     Dosage: 4mg/ 100ml, 1x per 28 days
  2. ZOMETA [Suspect]
     Dosage: 4mg/ 100ml, 1x per 28 days
     Dates: start: 20121113

REACTIONS (1)
  - Death [Fatal]
